FAERS Safety Report 23628827 (Version 7)
Quarter: 2025Q1

REPORT INFORMATION
  Report Type: Spontaneous
  Country: US (occurrence: US)
  Receive Date: 20240313
  Receipt Date: 20250319
  Transmission Date: 20250409
  Serious: No
  Sender: SANOFI AVENTIS
  Company Number: US-SA-2024SA078080

PATIENT
  Age: 40 Year
  Sex: Male
  Weight: 100 kg

DRUGS (23)
  1. FABRAZYME [Suspect]
     Active Substance: AGALSIDASE BETA
     Indication: Fabry^s disease
     Dosage: 100 MG, QOW
     Route: 042
     Dates: start: 20200528
  2. FABRAZYME [Suspect]
     Active Substance: AGALSIDASE BETA
     Dosage: 95 MG, QOW
     Route: 042
  3. LEXAPRO [Concomitant]
     Active Substance: ESCITALOPRAM OXALATE
  4. PRAVASTATIN SODIUM [Concomitant]
     Active Substance: PRAVASTATIN SODIUM
  5. ACETAMINOPHEN [Concomitant]
     Active Substance: ACETAMINOPHEN
  6. EPINEPHRINE [Concomitant]
     Active Substance: EPINEPHRINE
  7. SODIUM CHLORIDE [Concomitant]
     Active Substance: SODIUM CHLORIDE
  8. STERILISED WATER FOR INJECTION [Concomitant]
  9. VITAMINS NOS [Concomitant]
     Active Substance: VITAMINS
     Dosage: UNK, QD
  10. TRILEPTAL [Concomitant]
     Active Substance: OXCARBAZEPINE
  11. TOPAMAX [Concomitant]
     Active Substance: TOPIRAMATE
  12. SODIUM CHLORIDE [Concomitant]
     Active Substance: SODIUM CHLORIDE
  13. CYMBALTA [Concomitant]
     Active Substance: DULOXETINE HYDROCHLORIDE
  14. FOLIC ACID [Concomitant]
     Active Substance: FOLIC ACID
  15. VITAMIN B [Concomitant]
     Active Substance: VITAMIN B
  16. DIPHENHYDRAMINE [Concomitant]
     Active Substance: DIPHENHYDRAMINE
  17. DIPHENHYDRAMINE HYDROCHLORIDE [Concomitant]
     Active Substance: DIPHENHYDRAMINE HYDROCHLORIDE
  18. METHYLPREDNISOLONE [Concomitant]
     Active Substance: METHYLPREDNISOLONE
  19. FOSAMAX [Concomitant]
     Active Substance: ALENDRONATE SODIUM
  20. HEPARIN [Concomitant]
     Active Substance: HEPARIN SODIUM
  21. WEGOVY [Concomitant]
     Active Substance: SEMAGLUTIDE
  22. LIPITOR [Concomitant]
     Active Substance: ATORVASTATIN CALCIUM
  23. ACETAMINOPHEN\HYDROCODONE [Concomitant]
     Active Substance: ACETAMINOPHEN\HYDROCODONE

REACTIONS (7)
  - Weight increased [Unknown]
  - Weight decreased [Not Recovered/Not Resolved]
  - Flatulence [Unknown]
  - Abdominal distension [Unknown]
  - Condition aggravated [Unknown]
  - Diarrhoea [Unknown]
  - Fatigue [Unknown]

NARRATIVE: CASE EVENT DATE: 20240101
